FAERS Safety Report 5831239-6 (Version None)
Quarter: 2008Q3

REPORT INFORMATION
  Report Type: 
  Country: None (occurrence: None)
  Receive Date: 20080801
  Receipt Date: 20080327
  Transmission Date: 20090109
  Serious: No
  Sender: FDA-Public Use
  Company Number: US-BRISTOL-MYERS SQUIBB COMPANY-14128680

PATIENT
  Age: 69 Year
  Sex: Female
  Weight: 62 kg

DRUGS (6)
  1. COUMADIN [Suspect]
     Indication: ATRIAL FIBRILLATION
     Dosage: 1 DOSAGE FORM = 1 TAB QD ALTERNATING WITH 1/2 TAB QD
     Dates: start: 20060101
  2. AMIODARONE [Concomitant]
  3. JANUVIA [Concomitant]
     Dosage: 100 MG IN THE AM
  4. VITAMIN B COMPLEX [Concomitant]
  5. GLUCERNA [Concomitant]
  6. BOOST [Concomitant]

REACTIONS (1)
  - INTERNATIONAL NORMALISED RATIO INCREASED [None]
